FAERS Safety Report 8628711 (Version 2)
Quarter: 2014Q1

REPORT INFORMATION
  Report Type: Report from Study
  Country: GB (occurrence: GB)
  Receive Date: 20120621
  Receipt Date: 20140303
  Transmission Date: 20141002
  Serious: Yes (Other)
  Sender: FDA-Public Use
  Company Number: GB-ROCHE-1080514

PATIENT
  Age: 62 Year
  Sex: Female

DRUGS (2)
  1. RITUXIMAB [Suspect]
     Indication: RHEUMATOID ARTHRITIS
     Route: 042
  2. MYCOPHENOLATE MOFETIL [Concomitant]
     Route: 065

REACTIONS (3)
  - Neutropenia [Recovered/Resolved]
  - Neutropenic sepsis [Unknown]
  - Pneumonia [Unknown]
